FAERS Safety Report 5856702-3 (Version None)
Quarter: 2008Q3

REPORT INFORMATION
  Report Type: 
  Country: None (occurrence: None)
  Receive Date: 20080825
  Receipt Date: 20080818
  Transmission Date: 20090109
  Serious: Yes (Death, Congenital Anomaly)
  Sender: FDA-Public Use
  Company Number: GB-AVENTIS-200814420EU

PATIENT
  Sex: Male

DRUGS (4)
  1. ENOXAPARIN SODIUM [Suspect]
     Route: 064
     Dates: start: 20080229, end: 20080605
  2. CLENIL                             /00212602/ [Concomitant]
     Route: 064
     Dates: end: 20080605
  3. FOLIC ACID [Concomitant]
     Route: 064
     Dates: end: 20080605
  4. SALBUTAMOL [Concomitant]
     Route: 064
     Dates: end: 20080605

REACTIONS (3)
  - DRUG EXPOSURE DURING PREGNANCY [None]
  - HYPOXIC ENCEPHALOPATHY [None]
  - PULSE ABSENT [None]
